FAERS Safety Report 8562248 (Version 3)
Quarter: 2014Q3

REPORT INFORMATION
  Report Type: Report from Study
  Country: US (occurrence: US)
  Receive Date: 20120515
  Receipt Date: 20140717
  Transmission Date: 20150326
  Serious: No
  Sender: FDA-Public Use
  Company Number: US-ALEXION-A201100838

PATIENT

DRUGS (8)
  1. SOLIRIS [Suspect]
     Active Substance: ECULIZUMAB
     Dosage: 900 MG Q2W
     Route: 042
     Dates: end: 20140324
  2. SOLIRIS [Suspect]
     Active Substance: ECULIZUMAB
     Dosage: 900 MG, Q12D
     Route: 042
     Dates: start: 20140324
  3. SOLIRIS [Suspect]
     Active Substance: ECULIZUMAB
     Indication: PAROXYSMAL NOCTURNAL HAEMOGLOBINURIA
     Dosage: UNK
     Route: 042
     Dates: start: 20070625
  4. CYCLOSPORIN [Concomitant]
     Active Substance: CYCLOSPORINE
     Indication: IMMUNOSUPPRESSANT DRUG THERAPY
     Dosage: UNK
     Route: 048
     Dates: end: 20070827
  5. LISINOPRIL. [Concomitant]
     Active Substance: LISINOPRIL
     Indication: HYPERTENSION
     Route: 048
  6. PREDNISONE. [Concomitant]
     Active Substance: PREDNISONE
     Indication: PRODUCT USED FOR UNKNOWN INDICATION
     Route: 048
  7. VITAMIN D3 [Concomitant]
     Active Substance: CHOLECALCIFEROL
     Indication: PRODUCT USED FOR UNKNOWN INDICATION
     Dosage: UNK
     Route: 048
     Dates: start: 20110610
  8. VITAMIN D                          /00107901/ [Concomitant]
     Active Substance: ERGOCALCIFEROL
     Indication: PRODUCT USED FOR UNKNOWN INDICATION
     Dosage: UNK
     Route: 065
     Dates: start: 20110610

REACTIONS (9)
  - Protein total decreased [Unknown]
  - Blood calcium decreased [Unknown]
  - Fatigue [Unknown]
  - Haemoglobinuria [Not Recovered/Not Resolved]
  - Haemoglobin decreased [Unknown]
  - Platelet count decreased [Unknown]
  - Dyspnoea exertional [Unknown]
  - Nasopharyngitis [Unknown]
  - Chromaturia [Unknown]
